FAERS Safety Report 24383964 (Version 1)
Quarter: 2024Q4

REPORT INFORMATION
  Report Type: Spontaneous
  Country: CA (occurrence: CA)
  Receive Date: 20241001
  Receipt Date: 20241001
  Transmission Date: 20250115
  Serious: Yes (Hospitalization)
  Sender: ALEXION PHARMACEUTICALS
  Company Number: CA-AstraZeneca-CH-00711881A

PATIENT
  Age: 43 Year

DRUGS (20)
  1. QUETIAPINE FUMARATE [Suspect]
     Active Substance: QUETIAPINE FUMARATE
     Indication: Depression
     Dosage: UNK
  2. QUETIAPINE FUMARATE [Suspect]
     Active Substance: QUETIAPINE FUMARATE
     Indication: Bipolar disorder
     Dosage: UNK
  3. QUETIAPINE FUMARATE [Suspect]
     Active Substance: QUETIAPINE FUMARATE
     Dosage: UNK
  4. QUETIAPINE FUMARATE [Suspect]
     Active Substance: QUETIAPINE FUMARATE
     Dosage: UNK
  5. BENZTROPINE [Suspect]
     Active Substance: BENZTROPINE
     Indication: Depression
     Dosage: UNK
  6. BENZTROPINE [Suspect]
     Active Substance: BENZTROPINE
     Indication: Bipolar disorder
     Dosage: UNK
     Route: 065
  7. BREXPIPRAZOLE [Suspect]
     Active Substance: BREXPIPRAZOLE
     Indication: Depression
     Dosage: UNK
  8. BREXPIPRAZOLE [Suspect]
     Active Substance: BREXPIPRAZOLE
     Indication: Bipolar disorder
     Dosage: UNK
     Route: 065
  9. CLONAZEPAM [Suspect]
     Active Substance: CLONAZEPAM
     Indication: Depression
     Dosage: UNK
  10. CLONAZEPAM [Suspect]
     Active Substance: CLONAZEPAM
     Indication: Bipolar disorder
     Dosage: UNK
     Route: 065
  11. KETAMINE [Suspect]
     Active Substance: KETAMINE
     Indication: Bipolar disorder
     Dosage: UNK
     Route: 065
  12. KETAMINE [Suspect]
     Active Substance: KETAMINE
     Dosage: UNK
  13. KETAMINE [Suspect]
     Active Substance: KETAMINE
     Dosage: UNK, (0.5 MG/KG)
     Route: 065
  14. KETAMINE [Suspect]
     Active Substance: KETAMINE
     Dosage: UNK, (0.5 MG/KG)
  15. LEVOMILNACIPRAN [Suspect]
     Active Substance: LEVOMILNACIPRAN
     Indication: Depression
     Dosage: UNK
  16. LEVOMILNACIPRAN [Suspect]
     Active Substance: LEVOMILNACIPRAN
     Indication: Bipolar disorder
     Dosage: UNK
     Route: 065
  17. VORTIOXETINE [Suspect]
     Active Substance: VORTIOXETINE
     Indication: Depression
     Dosage: UNK
  18. VORTIOXETINE [Suspect]
     Active Substance: VORTIOXETINE
     Indication: Bipolar disorder
     Dosage: UNK
     Route: 065
  19. ZOPICLONE [Suspect]
     Active Substance: ZOPICLONE
     Indication: Depression
     Dosage: UNK
  20. ZOPICLONE [Suspect]
     Active Substance: ZOPICLONE
     Indication: Bipolar disorder
     Dosage: UNK
     Route: 065

REACTIONS (3)
  - Dissociation [Unknown]
  - Off label use [Unknown]
  - Drug ineffective [Unknown]
